FAERS Safety Report 14137547 (Version 1)
Quarter: 2017Q4

REPORT INFORMATION
  Report Type: Spontaneous
  Country: US (occurrence: US)
  Receive Date: 20171027
  Receipt Date: 20171027
  Transmission Date: 20180321
  Serious: No
  Sender: FDA-Public Use
  Company Number: US-SA-2017SA031508

PATIENT
  Sex: Female

DRUGS (1)
  1. UNISOM SLEEPTABS [Suspect]
     Active Substance: DOXYLAMINE SUCCINATE
     Dosage: START DATE - FOR ABOUT 3 MONTHS
     Route: 065

REACTIONS (4)
  - Product use issue [Unknown]
  - Pruritus generalised [Unknown]
  - Tremor [Unknown]
  - Pain in extremity [Unknown]
